FAERS Safety Report 9010457 (Version 2)
Quarter: 2015Q1

REPORT INFORMATION
  Report Type: Report from Study
  Country: US (occurrence: US)
  Receive Date: 20130109
  Receipt Date: 20150320
  Transmission Date: 20150721
  Serious: Yes (Death)
  Sender: FDA-Public Use
  Company Number: US-ROCHE-1177047

PATIENT
  Sex: Female
  Weight: 108.05 kg

DRUGS (9)
  1. HERCEPTIN [Suspect]
     Active Substance: TRASTUZUMAB
     Indication: BREAST CANCER FEMALE
     Route: 042
     Dates: start: 20070730
  2. HERCEPTIN [Suspect]
     Active Substance: TRASTUZUMAB
     Dosage: MAINTANANCE DOSE.
     Route: 042
  3. BENADRYL [Concomitant]
     Active Substance: DIPHENHYDRAMINE HYDROCHLORIDE
     Route: 042
  4. TYKERB [Concomitant]
     Active Substance: LAPATINIB DITOSYLATE
  5. TAXOL [Concomitant]
     Active Substance: PACLITAXEL
     Route: 065
  6. DEXAMETHASONE. [Concomitant]
     Active Substance: DEXAMETHASONE
     Route: 042
  7. ONDANSETRON [Concomitant]
     Active Substance: ONDANSETRON
     Route: 042
  8. PEPCID [Concomitant]
     Active Substance: FAMOTIDINE
     Route: 042
  9. XELODA [Suspect]
     Active Substance: CAPECITABINE
     Indication: BREAST CANCER FEMALE
     Dosage: FREQUENCY- 4 TABLETS 2 TIMES A DAY FOR 14 DAYS ON AND 7 DAYS OFF.
     Route: 048

REACTIONS (1)
  - Death [Fatal]
